FAERS Safety Report 10071990 (Version 1)
Quarter: 2014Q2

REPORT INFORMATION
  Report Type: Spontaneous
  Country: RU (occurrence: RU)
  Receive Date: 20140411
  Receipt Date: 20140411
  Transmission Date: 20141212
  Serious: Yes (Other)
  Sender: FDA-Public Use
  Company Number: RU-ROCHE-1375503

PATIENT
  Age: 76 Year
  Sex: Male

DRUGS (5)
  1. MABTHERA [Suspect]
     Indication: CHRONIC LYMPHOCYTIC LEUKAEMIA
     Route: 065
     Dates: start: 20130114, end: 20130117
  2. MABTHERA [Suspect]
     Indication: AUTOIMMUNE DISORDER
     Dosage: #1
     Route: 065
     Dates: start: 201401
  3. CYCLOPHOSPHANE [Concomitant]
     Indication: CHRONIC LYMPHOCYTIC LEUKAEMIA
     Route: 065
     Dates: start: 20130114
  4. FLUDARA [Concomitant]
     Indication: CHRONIC LYMPHOCYTIC LEUKAEMIA
     Route: 048
     Dates: start: 20140115
  5. MEDROL [Concomitant]
     Route: 065
     Dates: start: 201401

REACTIONS (2)
  - Erythema [Recovered/Resolved]
  - Angioedema [Recovered/Resolved]
